FAERS Safety Report 7979738-5 (Version None)
Quarter: 2011Q4

REPORT INFORMATION
  Report Type: 
  Country: None (occurrence: None)
  Receive Date: 20111214
  Receipt Date: 20110308
  Transmission Date: 20120403
  Serious: No
  Sender: FDA-Public Use
  Company Number: US-MYLANLABS-2011S1004656

PATIENT
  Age: 85 Year
  Sex: Female

DRUGS (1)
  1. OXYBUTYNIN HYDROCHLORIDE [Suspect]
     Dates: start: 20080101

REACTIONS (2)
  - OROPHARYNGEAL BLISTERING [None]
  - DRY MOUTH [None]
